FAERS Safety Report 13687164 (Version 3)
Quarter: 2017Q3

REPORT INFORMATION
  Report Type: Report from Study
  Country: US (occurrence: US)
  Receive Date: 20170623
  Receipt Date: 20170721
  Transmission Date: 20171127
  Serious: Yes (Hospitalization, Other)
  Sender: FDA-Public Use
  Company Number: US-ACTELION-A-NJ2016-133160

PATIENT
  Age: 55 Year
  Sex: Female
  Weight: 77.98 kg

DRUGS (6)
  1. SILDENAFIL. [Concomitant]
     Active Substance: SILDENAFIL
     Indication: PULMONARY ARTERIAL HYPERTENSION
  2. AMOXICILLIN. [Concomitant]
     Active Substance: AMOXICILLIN
     Dosage: 875 MG, BID
     Route: 048
  3. REMODULIN [Concomitant]
     Active Substance: TREPROSTINIL
     Dosage: UNK
  4. ELIQUIS [Concomitant]
     Active Substance: APIXABAN
  5. NIFEDIPINE. [Concomitant]
     Active Substance: NIFEDIPINE
  6. TRACLEER [Suspect]
     Active Substance: BOSENTAN
     Indication: PULMONARY HYPERTENSION
     Dosage: 125 MG, BID
     Route: 048
     Dates: start: 20121207

REACTIONS (12)
  - Systemic lupus erythematosus [Unknown]
  - Muscular weakness [Unknown]
  - Insomnia [Unknown]
  - Nausea [Unknown]
  - Weight decreased [Unknown]
  - Therapy non-responder [Unknown]
  - Pleural effusion [Unknown]
  - Diarrhoea [Unknown]
  - Vomiting [Unknown]
  - Dehydration [Unknown]
  - Haemoptysis [Unknown]
  - Catheter site pain [Unknown]

NARRATIVE: CASE EVENT DATE: 20170615
